FAERS Safety Report 6295189-6 (Version None)
Quarter: 2009Q3

REPORT INFORMATION
  Report Type: 
  Country: None (occurrence: None)
  Receive Date: 20090803
  Receipt Date: 20090609
  Transmission Date: 20100115
  Serious: Yes (Other)
  Sender: FDA-Public Use
  Company Number: US-PURDUE-USA-2009-0039083

PATIENT
  Sex: Female

DRUGS (7)
  1. OXYCONTIN [Suspect]
     Indication: ANALGESIA
     Dosage: 80 MG, TID
     Dates: start: 19991105, end: 20021118
  2. OXYCONTIN [Suspect]
     Indication: BACK PAIN
  3. DICLOFENAC [Concomitant]
     Indication: ARTHRITIS
     Dosage: 75 MG, DAILY
  4. POTASSIUM CHLORIDE [Concomitant]
  5. NORVASC [Concomitant]
     Dosage: 10 MG, UNK
  6. NEXIUM [Concomitant]
     Dosage: 40 MG, UNK
  7. SIMVASTATIN [Concomitant]
     Dosage: 20 MG, UNK

REACTIONS (19)
  - ANXIETY [None]
  - ASTHENIA [None]
  - BURNING SENSATION [None]
  - DENTAL CARIES [None]
  - DRUG DEPENDENCE [None]
  - DRUG WITHDRAWAL SYNDROME [None]
  - GENERAL PHYSICAL HEALTH DETERIORATION [None]
  - GINGIVAL PAIN [None]
  - HEADACHE [None]
  - MUSCULAR WEAKNESS [None]
  - NASAL DISCOMFORT [None]
  - NAUSEA [None]
  - NERVOUSNESS [None]
  - PAIN [None]
  - PALPITATIONS [None]
  - TOOTH LOSS [None]
  - TREMOR [None]
  - VOMITING [None]
  - WEIGHT DECREASED [None]
